FAERS Safety Report 17750335 (Version 1)
Quarter: 2020Q2

REPORT INFORMATION
  Report Type: Spontaneous
  Country: US (occurrence: US)
  Receive Date: 20200506
  Receipt Date: 20200506
  Transmission Date: 20200714
  Serious: No
  Sender: FDA-Public Use
  Company Number: US-PFIZER INC-2020181528

PATIENT
  Age: 75 Year
  Sex: Female
  Weight: 62.59 kg

DRUGS (1)
  1. PREGABALIN. [Suspect]
     Active Substance: PREGABALIN
     Dosage: UNK

REACTIONS (3)
  - Dizziness [Unknown]
  - Drug ineffective [Unknown]
  - Nausea [Unknown]
